FAERS Safety Report 18220868 (Version 1)
Quarter: 2020Q3

REPORT INFORMATION
  Report Type: Spontaneous
  Country: US (occurrence: US)
  Receive Date: 20200902
  Receipt Date: 20200902
  Transmission Date: 20201103
  Serious: Yes (Hospitalization, Other)
  Sender: FDA-Public Use
  Company Number: US-SUN PHARMACEUTICAL INDUSTRIES LTD-2020R1-258626

PATIENT
  Sex: Female
  Weight: .81 kg

DRUGS (9)
  1. AZITHROMYCIN ANHYDROUS. [Suspect]
     Active Substance: AZITHROMYCIN ANHYDROUS
     Indication: COVID-19
     Route: 064
  2. MAGNESIUM SULFATE. [Concomitant]
     Active Substance: MAGNESIUM SULFATE
     Indication: PRODUCT USED FOR UNKNOWN INDICATION
     Route: 065
  3. PROPOFOL. [Concomitant]
     Active Substance: PROPOFOL
     Indication: SEDATION
  4. REMDESIVIR. [Suspect]
     Active Substance: REMDESIVIR
     Indication: COVID-19
     Route: 064
  5. NITRIC OXIDE. [Suspect]
     Active Substance: NITRIC OXIDE
     Indication: COVID-19
     Route: 064
  6. HYDROXYCHLOROQUINE [Suspect]
     Active Substance: HYDROXYCHLOROQUINE
     Indication: COVID-19
     Route: 064
  7. BETAMETHASONE. [Suspect]
     Active Substance: BETAMETHASONE
     Indication: MATERNAL THERAPY TO ENHANCE FOETAL LUNG MATURITY
     Route: 064
  8. TOCILIZUMAB. [Suspect]
     Active Substance: TOCILIZUMAB
     Indication: COVID-19
     Route: 064
  9. PROPOFOL. [Concomitant]
     Active Substance: PROPOFOL
     Indication: PAIN
     Route: 064

REACTIONS (7)
  - Neonatal respiratory distress syndrome [Recovering/Resolving]
  - Patent ductus arteriosus [Unknown]
  - Premature baby [Unknown]
  - Low birth weight baby [Unknown]
  - Intraventricular haemorrhage neonatal [Unknown]
  - Coagulopathy [Unknown]
  - Foetal exposure during pregnancy [Unknown]
